FAERS Safety Report 10180408 (Version 2)
Quarter: 2014Q2

REPORT INFORMATION
  Report Type: Spontaneous
  Country: US (occurrence: US)
  Receive Date: 20140519
  Receipt Date: 20140519
  Transmission Date: 20141212
  Serious: No
  Sender: FDA-Public Use
  Company Number: US-AMGEN INC.-USASP2013075201

PATIENT
  Age: 69 Year
  Sex: Female
  Weight: 53.06 kg

DRUGS (6)
  1. PROLIA [Suspect]
     Indication: OSTEOPOROSIS POSTMENOPAUSAL
     Dosage: 60 MG, Q6MO
     Route: 058
     Dates: start: 20130716
  2. VITAMIN D                          /00107901/ [Concomitant]
     Route: 048
  3. MAGNESIUM [Concomitant]
     Route: 048
  4. SPIRIVA [Concomitant]
     Indication: CHRONIC OBSTRUCTIVE PULMONARY DISEASE
     Dosage: 18 MG, QD
     Route: 048
  5. SEREVENT [Concomitant]
     Indication: CHRONIC OBSTRUCTIVE PULMONARY DISEASE
     Dosage: 50 MUG, BID
     Route: 048
  6. CALCIUM [Concomitant]
     Route: 048

REACTIONS (1)
  - Diarrhoea [Recovering/Resolving]
